FAERS Safety Report 23076329 (Version 1)
Quarter: 2023Q4

REPORT INFORMATION
  Report Type: Spontaneous
  Country: RO (occurrence: None)
  Receive Date: 20231017
  Receipt Date: 20231017
  Transmission Date: 20240109
  Serious: Yes (Other)
  Sender: FDA-Public Use
  Company Number: 2023A234268

PATIENT
  Age: 82 Year
  Sex: Female

DRUGS (2)
  1. FULVESTRANT [Suspect]
     Active Substance: FULVESTRANT
     Indication: Breast cancer female
     Dosage: 10 CYCLES
     Route: 030
     Dates: start: 202301
  2. PALBOCICLIB [Suspect]
     Active Substance: PALBOCICLIB
     Indication: Breast cancer female
     Dosage: 10 CYCLES
     Dates: start: 202301

REACTIONS (1)
  - Behcet^s syndrome [Unknown]

NARRATIVE: CASE EVENT DATE: 20231001
